FAERS Safety Report 6577106-4 (Version None)
Quarter: 2010Q1

REPORT INFORMATION
  Report Type: 
  Country: None (occurrence: None)
  Receive Date: 20100210
  Receipt Date: 20100128
  Transmission Date: 20100710
  Serious: Yes (Hospitalization)
  Sender: FDA-Public Use
  Company Number: US-ELI_LILLY_AND_COMPANY-US200912003130

PATIENT
  Sex: Female
  Weight: 53.061 kg

DRUGS (16)
  1. FORTEO [Suspect]
     Indication: OSTEOPOROSIS
     Dosage: 20 UG, DAILY (1/D)
     Dates: start: 20090729, end: 20090101
  2. VITAMIN D [Concomitant]
     Dosage: 50000 U, WEEKLY (1/W)
  3. ZETIA [Concomitant]
     Dosage: 10 MG, DAILY (1/D)
  4. VOLTAREN [Concomitant]
     Dosage: UNK, 4/D
     Route: 061
  5. MIDODRINE HYDROCHLORIDE [Concomitant]
     Dosage: 2.5 MG, 3/D
  6. LIDODERM [Concomitant]
     Dosage: UNK, DAILY (1/D)
  7. ASPIRIN [Concomitant]
     Dosage: 81 MG, DAILY (1/D)
  8. TRAMADOL HCL [Concomitant]
     Dosage: 50 MG, AS NEEDED
  9. ALBUTEROL [Concomitant]
     Dosage: 90 UG, UNK
  10. ACIPHEX [Concomitant]
     Dosage: 20 MG, DAILY (1/D)
  11. DARVOCET-N 100 [Concomitant]
     Dosage: UNK, 2/D
  12. CALCIUM W/MAGNESIUM/VITAMIN D [Concomitant]
     Dosage: 1000 U, DAILY (1/D)
  13. LOVAZA [Concomitant]
     Dosage: UNK, DAILY (1/D)
  14. PREDNISONE [Concomitant]
     Dosage: 6 MG, DAILY (1/D)
  15. MULTI-VITAMIN [Concomitant]
     Dosage: UNK, DAILY (1/D)
  16. EVISTA [Concomitant]
     Dosage: 60 MG, DAILY (1/D)

REACTIONS (9)
  - CHEST DISCOMFORT [None]
  - COUGH [None]
  - EYELID PTOSIS [None]
  - GINGIVAL DISORDER [None]
  - HEADACHE [None]
  - ORAL PAIN [None]
  - TOOTHACHE [None]
  - VIRAL INFECTION [None]
  - VISUAL ACUITY REDUCED [None]
